FAERS Safety Report 13043266 (Version 2)
Quarter: 2017Q1

REPORT INFORMATION
  Report Type: Spontaneous
  Country: GB (occurrence: GB)
  Receive Date: 20161219
  Receipt Date: 20170221
  Transmission Date: 20170428
  Serious: Yes (Other)
  Sender: FDA-Public Use
  Company Number: GB-AMGEN-GBRSP2016178427

PATIENT
  Age: 54 Year
  Sex: Female

DRUGS (1)
  1. ENBREL [Suspect]
     Active Substance: ETANERCEPT
     Indication: PRODUCT USED FOR UNKNOWN INDICATION
     Dosage: 50 MG, WEEKLY
     Route: 058

REACTIONS (6)
  - Condition aggravated [Unknown]
  - Pleurisy [Unknown]
  - Malaise [Unknown]
  - Bronchitis [Unknown]
  - Postoperative wound infection [Unknown]
  - Arthralgia [Unknown]
